FAERS Safety Report 23576578 (Version 1)
Quarter: 2024Q1

REPORT INFORMATION
  Report Type: Spontaneous
  Country: ES (occurrence: ES)
  Receive Date: 20240228
  Receipt Date: 20240228
  Transmission Date: 20240410
  Serious: Yes (Other)
  Sender: FDA-Public Use
  Company Number: ES-AVEO PHARMACEUTICALS, INC.-2024-AVEO-ES000169

PATIENT

DRUGS (1)
  1. FOTIVDA [Suspect]
     Active Substance: TIVOZANIB HYDROCHLORIDE
     Indication: Clear cell renal cell carcinoma
     Dosage: 1250 MG, Q3W (EVERY 3 WEEK) (890 MICROGRAMS CAPSULES HARD, 21 CAPSULES)
     Route: 048
     Dates: start: 20230509

REACTIONS (2)
  - Condition aggravated [Recovered/Resolved]
  - Hypertensive crisis [Recovered/Resolved]

NARRATIVE: CASE EVENT DATE: 20230525
